FAERS Safety Report 21438608 (Version 1)
Quarter: 2022Q4

REPORT INFORMATION
  Report Type: Spontaneous
  Country: DE (occurrence: DE)
  Receive Date: 20221011
  Receipt Date: 20221011
  Transmission Date: 20230112
  Serious: No
  Sender: FDA-Public Use
  Company Number: None

PATIENT
  Age: 41 Year
  Sex: Female

DRUGS (2)
  1. IBUPROFEN [Suspect]
     Active Substance: IBUPROFEN
     Indication: Product used for unknown indication
     Dosage: UNK
     Route: 065
  2. PLEGRIDY [Suspect]
     Active Substance: PEGINTERFERON BETA-1A
     Indication: Multiple sclerosis
     Dosage: 125 MICROGRAM, EVERY 14 DAY
     Route: 058
     Dates: start: 20210827

REACTIONS (8)
  - Gastric disorder [Recovered/Resolved]
  - Disturbance in attention [Unknown]
  - Eye pain [Not Recovered/Not Resolved]
  - Ear infection [Recovered/Resolved]
  - Fatigue [Unknown]
  - Myalgia [Unknown]
  - Ear inflammation [Not Recovered/Not Resolved]
  - Ocular discomfort [Not Recovered/Not Resolved]

NARRATIVE: CASE EVENT DATE: 20220301
